FAERS Safety Report 14428970 (Version 1)
Quarter: 2018Q1

REPORT INFORMATION
  Report Type: Spontaneous
  Country: US (occurrence: US)
  Receive Date: 20180123
  Receipt Date: 20180123
  Transmission Date: 20180509
  Serious: Yes (Hospitalization)
  Sender: FDA-Public Use
  Company Number: None

PATIENT
  Age: 63 Year
  Sex: Female
  Weight: 84.6 kg

DRUGS (23)
  1. FOLIC ACID/MULTIVIT-MIN/LUTEIN (CENTRUM SILVER ORAL) [Concomitant]
  2. SYMBICORT [Concomitant]
     Active Substance: BUDESONIDE\FORMOTEROL FUMARATE DIHYDRATE
  3. CYANOCOBALAMIN. [Concomitant]
     Active Substance: CYANOCOBALAMIN
  4. COLACE [Concomitant]
     Active Substance: DOCUSATE SODIUM
  5. LASIX [Concomitant]
     Active Substance: FUROSEMIDE
  6. MYCOPHENOLATE MOFETIL (CELLCEPT) [Concomitant]
  7. NIFEDICAL XL [Concomitant]
     Active Substance: NIFEDIPINE
  8. ROXICODONE [Concomitant]
     Active Substance: OXYCODONE HYDROCHLORIDE
  9. ZEPATIER [Suspect]
     Active Substance: ELBASVIR\GRAZOPREVIR
     Indication: HEPATITIS C
     Dosage: 50-100MG QD ORAL
     Route: 048
     Dates: start: 20170422, end: 20170725
  10. NORVASC [Concomitant]
     Active Substance: AMLODIPINE BESYLATE
  11. ASPIRIN. [Concomitant]
     Active Substance: ASPIRIN
  12. AMBIEN [Concomitant]
     Active Substance: ZOLPIDEM TARTRATE
  13. DUONEB [Concomitant]
     Active Substance: ALBUTEROL SULFATE\IPRATROPIUM BROMIDE
  14. LIPITOR [Concomitant]
     Active Substance: ATORVASTATIN CALCIUM
  15. VITAMIN B12 [Concomitant]
     Active Substance: CYANOCOBALAMIN
  16. PRILOSEC [Concomitant]
     Active Substance: OMEPRAZOLE MAGNESIUM
  17. ELBASVIR-GRAZOPREVIR [Concomitant]
     Active Substance: ELBASVIR\GRAZOPREVIR
  18. OXYCONTIN [Concomitant]
     Active Substance: OXYCODONE HYDROCHLORIDE
  19. BENZONATATE (TESSALON) [Concomitant]
  20. LYRICA [Concomitant]
     Active Substance: PREGABALIN
  21. ALBUTEROL HFA [Concomitant]
     Active Substance: ALBUTEROL SULFATE
  22. DELTASONE [Concomitant]
     Active Substance: PREDNISONE
  23. ZITHROMAX [Concomitant]
     Active Substance: AZITHROMYCIN DIHYDRATE

REACTIONS (5)
  - Dyspnoea [None]
  - Swelling [None]
  - Systemic lupus erythematosus [None]
  - Drug dose omission [None]
  - Swelling face [None]

NARRATIVE: CASE EVENT DATE: 20170526
